FAERS Safety Report 9482366 (Version 1)
Quarter: 2013Q3

REPORT INFORMATION
  Report Type: Spontaneous
  Country: ES (occurrence: ES)
  Receive Date: 20130828
  Receipt Date: 20130828
  Transmission Date: 20140515
  Serious: Yes (Life-Threatening, Hospitalization)
  Sender: FDA-Public Use
  Company Number: PHHY2013ES093162

PATIENT
  Age: 55 Year
  Sex: Female

DRUGS (1)
  1. METFORMIN SANDOZ [Suspect]
     Indication: HYPERGLYCAEMIA
     Dosage: 850 MG
     Route: 048
     Dates: start: 20130319, end: 20130410

REACTIONS (5)
  - Transient ischaemic attack [Recovered/Resolved]
  - Gait disturbance [Recovered/Resolved]
  - Vertigo [Recovered/Resolved]
  - Dysarthria [Recovered/Resolved]
  - Somnolence [Recovered/Resolved]
